FAERS Safety Report 20304075 (Version 2)
Quarter: 2022Q1

REPORT INFORMATION
  Report Type: Report from Study
  Country: US (occurrence: US)
  Receive Date: 20220106
  Receipt Date: 20220221
  Transmission Date: 20220423
  Serious: Yes (Death)
  Sender: FDA-Public Use
  Company Number: US-JNJFOC-20211266982

PATIENT
  Age: 4 Decade
  Sex: Female
  Weight: 121.40 kg

DRUGS (14)
  1. SPRAVATO [Suspect]
     Active Substance: ESKETAMINE
     Indication: Depression
     Dosage: 56 MG, 4 TOTAL DOSES?3 SPRAYS INTO BOTH NOSTRILS TWICE WEEKLY
     Dates: start: 20201202, end: 20210415
  2. SPRAVATO [Suspect]
     Active Substance: ESKETAMINE
     Dosage: 84 MG, 16 TOTAL DOSES?CONFLICTINGLY REPORTED THERAPY END DATE AS 11-AUG-2021
     Dates: start: 20210419, end: 20210817
  3. ENOXAPARIN [Concomitant]
     Active Substance: ENOXAPARIN
     Indication: Thrombosis prophylaxis
     Dosage: LAST SENT TO PHARMACY (17-SEP-2021)?120 MG/0.8 ML
     Route: 058
     Dates: start: 20210419
  4. ELIQUIS [Concomitant]
     Active Substance: APIXABAN
     Indication: Thrombosis prophylaxis
     Dosage: LAST SENT TO PHARMACY (15-SEP-2021)
     Dates: start: 20210310
  5. AIMOVIG [Concomitant]
     Active Substance: ERENUMAB-AOOE
     Indication: Migraine prophylaxis
     Dosage: LAST SENT BY PROVIDER (01-SEP-2021)?140 MG/ML , SUBCUTANEOUS AUTO INJECTOR
     Route: 058
     Dates: start: 20210223
  6. ALPRAZOLAM [Concomitant]
     Active Substance: ALPRAZOLAM
     Indication: Anxiety
     Dosage: LAST SENT TO PHARMACY ON 12-AUG-2021
     Dates: start: 20210323
  7. ESCITALOPRAM [Concomitant]
     Active Substance: ESCITALOPRAM OXALATE
     Indication: Depression
     Dosage: LAST SENT TO PHARMACY ON 13-SEP-2021
     Dates: start: 20210423
  8. RIZATRIPTAN [Concomitant]
     Active Substance: RIZATRIPTAN
     Indication: Migraine
     Dosage: LAST SENT TO PHARMACY (08-SEP-2021)
     Dates: start: 20210215
  9. PROMETHAZINE [Concomitant]
     Active Substance: PROMETHAZINE HYDROCHLORIDE
     Indication: Nausea
     Dosage: LAST SENT TO PHARMACY (16-SEP-2021)
     Dates: start: 20210222
  10. PROCHLORPERAZINE MALEATE [Concomitant]
     Active Substance: PROCHLORPERAZINE MALEATE
     Indication: Nausea
     Dosage: LAST SENT TO PHARMACY (14-SEP-2021)
     Dates: start: 20210303
  11. PROCHLORPERAZINE MALEATE [Concomitant]
     Active Substance: PROCHLORPERAZINE MALEATE
     Indication: Vomiting
  12. PROCHLORPERAZINE MALEATE [Concomitant]
     Active Substance: PROCHLORPERAZINE MALEATE
     Indication: Anxiety
  13. LIDOCAINE VISCOUS [Concomitant]
     Active Substance: LIDOCAINE HYDROCHLORIDE
     Indication: Oropharyngeal pain
     Dosage: LAST SENT TO PHARMACY (01-SEP-2021)
     Dates: start: 20210901
  14. ACETAMINOPHEN\HYDROCODONE [Concomitant]
     Active Substance: ACETAMINOPHEN\HYDROCODONE
     Indication: Pain
     Dosage: 7.5 MG, 325 MG TABLETS
     Dates: start: 20210904

REACTIONS (1)
  - Death [Fatal]
